FAERS Safety Report 8601416-X (Version None)
Quarter: 2012Q3

REPORT INFORMATION
  Report Type: 
  Country: None (occurrence: None)
  Receive Date: 20120817
  Receipt Date: 20110802
  Transmission Date: 20120928
  Serious: No
  Sender: FDA-Public Use
  Company Number: US-BRISTOL-MYERS SQUIBB COMPANY-15233422

PATIENT
  Age: 38 Year
  Sex: Male
  Weight: 101 kg

DRUGS (1)
  1. SPRYCEL [Suspect]
     Indication: CHRONIC MYELOID LEUKAEMIA
     Route: 048
     Dates: start: 20100101

REACTIONS (3)
  - PREGNANCY [None]
  - EXPOSURE VIA FATHER [None]
  - NORMAL NEWBORN [None]
